FAERS Safety Report 7042345-5 (Version None)
Quarter: 2010Q4

REPORT INFORMATION
  Report Type: 
  Country: None (occurrence: None)
  Receive Date: 20101013
  Receipt Date: 20100427
  Transmission Date: 20110411
  Serious: No
  Sender: FDA-Public Use
  Company Number: US-ASTRAZENECA-2010SE10724

PATIENT
  Sex: Female
  Weight: 58.1 kg

DRUGS (8)
  1. SYMBICORT [Suspect]
     Indication: CHRONIC OBSTRUCTIVE PULMONARY DISEASE
     Dosage: 160/4.5 UG 2 PUFFS IN AM/ 2 PUFFS IN PM
     Route: 055
     Dates: start: 20090101, end: 20100101
  2. SYMBICORT [Suspect]
     Route: 055
     Dates: start: 20100101
  3. TOPROL-XL [Suspect]
     Indication: HYPERTENSION
     Route: 048
     Dates: start: 20090101, end: 20100101
  4. PULMICORT FLEXHALER [Suspect]
     Indication: CHRONIC OBSTRUCTIVE PULMONARY DISEASE
     Route: 055
     Dates: start: 20100101, end: 20100101
  5. VERAPAMIL [Concomitant]
  6. ALBUTEROL [Concomitant]
  7. XOPENEX [Concomitant]
  8. BENYLIN [Concomitant]

REACTIONS (9)
  - ASTHENIA [None]
  - CATARACT [None]
  - DECREASED APPETITE [None]
  - DRUG INEFFECTIVE [None]
  - DYSPNOEA [None]
  - EYE SWELLING [None]
  - HEART RATE INCREASED [None]
  - HYPERTENSION [None]
  - MALAISE [None]
